FAERS Safety Report 8892372 (Version 2)
Quarter: 2013Q1

REPORT INFORMATION
  Report Type: Spontaneous
  Country: US (occurrence: US)
  Receive Date: 20121107
  Receipt Date: 20130123
  Transmission Date: 20140127
  Serious: Yes (Hospitalization, Disabling, Other)
  Sender: FDA-Public Use
  Company Number: US-GLAXOSMITHKLINE-A1000024A

PATIENT
  Age: 55 Year
  Sex: Male
  Weight: 74.4 kg

DRUGS (22)
  1. MELPHALAN [Suspect]
     Indication: STEM CELL TRANSPLANT
     Dosage: 200MGM2 SINGLE DOSE
     Route: 042
     Dates: start: 20110824, end: 20110824
  2. CEFEPIME [Concomitant]
  3. VANCOMYCIN [Concomitant]
  4. CIPRO [Concomitant]
     Dosage: 500MG TWICE PER DAY
     Route: 048
     Dates: start: 20110909, end: 20110918
  5. ZOFRAN [Concomitant]
     Indication: NAUSEA
     Dosage: 8MG AS REQUIRED
     Route: 048
     Dates: start: 20110909
  6. DECADRON [Concomitant]
     Dosage: 4MG PER DAY
     Route: 048
     Dates: start: 20110909, end: 20110913
  7. COMPAZINE [Concomitant]
     Dosage: 10MG AS REQUIRED
     Route: 048
     Dates: start: 20110909
  8. ATIVAN [Concomitant]
     Route: 048
     Dates: start: 20110909
  9. REGLAN [Concomitant]
  10. IV FLUIDS [Concomitant]
  11. PLATELET TRANSFUSION [Concomitant]
  12. NEUPOGEN [Concomitant]
  13. ZOVIRAX [Concomitant]
     Dosage: 400MG TWICE PER DAY
     Route: 048
  14. MULTIVITAMIN [Concomitant]
     Dosage: 1TAB PER DAY
     Route: 048
  15. ADVAIR [Concomitant]
     Route: 055
  16. SINGULAIR [Concomitant]
     Route: 048
  17. GLUCOSAMINE CHONDROITIN [Concomitant]
  18. ALEVE [Concomitant]
     Route: 048
  19. FOLVITE [Concomitant]
     Dosage: 1MG PER DAY
     Route: 048
     Dates: start: 20110909
  20. IMODIUM [Concomitant]
     Dosage: 2MG AS REQUIRED
     Route: 048
     Dates: start: 20110909
  21. BACTRIM [Concomitant]
     Dosage: 2TAB THREE TIMES PER WEEK
     Route: 048
     Dates: start: 20110919
  22. AUTOLOGOUS STEM CELL INFUSION [Concomitant]

REACTIONS (10)
  - Sepsis [Recovered/Resolved]
  - Pancytopenia [Recovered/Resolved]
  - Escherichia bacteraemia [Recovered/Resolved]
  - Febrile neutropenia [Recovered/Resolved]
  - Nausea [Recovered/Resolved]
  - Vomiting [Recovered/Resolved]
  - Decreased appetite [Recovered/Resolved]
  - Diarrhoea [Recovered/Resolved]
  - Platelet count decreased [Recovered/Resolved]
  - Mucosal inflammation [Recovered/Resolved]
